FAERS Safety Report 26051457 (Version 1)
Quarter: 2025Q4

REPORT INFORMATION
  Report Type: Spontaneous
  Country: EU (occurrence: EU)
  Receive Date: 20251117
  Receipt Date: 20251117
  Transmission Date: 20260118
  Serious: Yes (Hospitalization)
  Sender: DR REDDYS
  Company Number: None

PATIENT
  Age: 61 Year
  Sex: Female
  Weight: 55.9 kg

DRUGS (19)
  1. CYCLOPHOSPHAMIDE [Suspect]
     Active Substance: CYCLOPHOSPHAMIDE
     Indication: Triple negative breast cancer
     Dosage: ON 08-JAN-2025, SHE RECEIVED HER MOST RECENT DOSE OF CYCLOPHOSPHAMIDE 600 MG/M2 PRIOR TO AE LAST DOS
     Route: 042
     Dates: start: 20241107
  2. CYCLOPHOSPHAMIDE [Suspect]
     Active Substance: CYCLOPHOSPHAMIDE
     Dosage: ON 08-JAN-2025, SHE RECEIVED HER MOST RECENT DOSE OF CYCLOPHOSPHAMIDE 600 MG/M2 PRIOR TO AE CYCLE 8
     Dates: end: 20250108
  3. DOXORUBICIN [Suspect]
     Active Substance: DOXORUBICIN
     Indication: Triple negative breast cancer
     Dosage: ON 08-JAN-2025, SHE RECEIVED HER MOST RECENT DOSE OF DOXORUBICIN 60 MG/M2 PRIOR TO AE. CUMULATIVE DO
     Route: 042
     Dates: start: 20241107
  4. DOXORUBICIN [Suspect]
     Active Substance: DOXORUBICIN
     Dosage: ON 08-JAN-2025, SHE RECEIVED HER MOST RECENT DOSE OF DOXORUBICIN 60 MG/M2 PRIOR TO AE.
     Dates: end: 20250108
  5. ATEZOLIZUMAB [Suspect]
     Active Substance: ATEZOLIZUMAB
     Indication: Triple negative breast cancer
     Dosage: ON 23-APR-2025, SHE RECEIVED HER MOST RECENT DOSE OF ATEZOLIZUMAB 1200 MG PRIOR TO AE.  CYCLE 3 DAY
     Route: 042
     Dates: start: 20240729
  6. ATEZOLIZUMAB [Suspect]
     Active Substance: ATEZOLIZUMAB
     Dosage: ON 23-APR-2025, SHE RECEIVED HER MOST RECENT DOSE OF ATEZOLIZUMAB 1200 MG PRIOR TO AE. CYCLE 3 DAY 1
     Dates: end: 20250423
  7. TIRAGOLUMAB [Suspect]
     Active Substance: TIRAGOLUMAB
     Indication: Triple negative breast cancer
     Dosage: ON 23-APR-2025, SHE RECEIVED HER MOST RECENT DOSE OF TIRAGOLIMAB 600 MG PRIOR TO AE. LAST CYCLE OF A
     Route: 042
     Dates: start: 20240729
  8. TIRAGOLUMAB [Suspect]
     Active Substance: TIRAGOLUMAB
     Dosage: ON 23-APR-2025, SHE RECEIVED HER MOST RECENT DOSE OF TIRAGOLIMAB 600 MG PRIOR TO AE.
     Dates: end: 20250423
  9. CAPECITABINE [Suspect]
     Active Substance: CAPECITABINE
     Indication: Triple negative breast cancer
     Dosage: LAST DOSE RECEIVED 2000 MG
     Route: 048
     Dates: start: 20250318
  10. CAPECITABINE [Suspect]
     Active Substance: CAPECITABINE
     Dosage: 1300 MG 5/7 DAYS DURING RADIOTHERAPY: SUSPENDED
     Route: 048
  11. PACLITAXEL [Suspect]
     Active Substance: PACLITAXEL
     Indication: Triple negative breast cancer
     Dosage: ON 23-OCT-2024, SHE RECEIVED HER MOST RECENT DOSE OF NAB PACLITAXEL 170 MG PRIOR TO AE. CUMULATIVE D
     Route: 042
     Dates: start: 20240729
  12. PACLITAXEL [Suspect]
     Active Substance: PACLITAXEL
     Dosage: ON 23-OCT-2024, SHE RECEIVED HER MOST RECENT DOSE OF NAB PACLITAXEL 170 MG PRIOR TO AE.
     Dates: end: 20241023
  13. CARBOPLATIN [Suspect]
     Active Substance: CARBOPLATIN
     Indication: Triple negative breast cancer
     Dosage: ON 08-OCT-2024, SHE RECEIVED HER MOST RECENT DOSE OF CARBOPLATINE 450 MG PRIOR TO AE. CUMULATIVE DOS
     Route: 042
     Dates: start: 20240729
  14. CARBOPLATIN [Suspect]
     Active Substance: CARBOPLATIN
     Dosage: ON 08-OCT-2024, SHE RECEIVED HER MOST RECENT DOSE OF CARBOPLATINE 450 MG PRIOR TO AE.
     Dates: end: 20241008
  15. LEVOTHYROXINE [Concomitant]
     Active Substance: LEVOTHYROXINE
     Indication: Thyroidectomy
     Route: 048
     Dates: end: 20241204
  16. LEVOTHYROXINE [Concomitant]
     Active Substance: LEVOTHYROXINE
     Route: 048
     Dates: start: 20241204
  17. ATORVASTATIN [Concomitant]
     Active Substance: ATORVASTATIN
     Indication: Product used for unknown indication
     Route: 048
     Dates: start: 202311
  18. ZOLPIDEM [Concomitant]
     Active Substance: ZOLPIDEM TARTRATE
     Indication: Product used for unknown indication
     Route: 048
     Dates: start: 202406
  19. SORBILINE [Concomitant]
     Indication: Product used for unknown indication
     Dates: start: 202401

REACTIONS (2)
  - Diarrhoea [Not Recovered/Not Resolved]
  - Colitis [Recovered/Resolved]

NARRATIVE: CASE EVENT DATE: 20250425
